FAERS Safety Report 25036929 (Version 6)
Quarter: 2025Q3

REPORT INFORMATION
  Report Type: Report from Study
  Country: US (occurrence: US)
  Receive Date: 20250304
  Receipt Date: 20250819
  Transmission Date: 20251021
  Serious: Yes (Hospitalization, Other)
  Sender: GILEAD
  Company Number: US-GILEAD-2025-0705750

PATIENT
  Age: 61 Year
  Sex: Female

DRUGS (58)
  1. AZTREONAM LYSINE [Suspect]
     Active Substance: AZTREONAM LYSINE
     Indication: Cystic fibrosis
     Dosage: 75MG: INHALE ONE VIAL (75 MG) VIA NEBULIZER THREE TIMES DAILY CYCLE 28 DAYS ON, 28 DAYS OFF
     Route: 055
     Dates: start: 20150121
  2. AZTREONAM LYSINE [Suspect]
     Active Substance: AZTREONAM LYSINE
     Dosage: 75 MG: INHALE ONE VIAL (75 MG) VIA NEBULIZER THREE TIMES DAILY CYCLE 28 DAYS ON, 28 DAYS OFF
     Route: 055
     Dates: start: 20150421
  3. AZTREONAM LYSINE [Suspect]
     Active Substance: AZTREONAM LYSINE
     Dosage: INHALE ONE VIAL (75MG) VIA NEBULIZER THREE TIMES DAILY CYCLE 28 DAYS ON, 28 DAYS OFF
     Route: 055
     Dates: start: 20150421
  4. ACID REDUCER PLUS ANTACID [Concomitant]
     Active Substance: CALCIUM CARBONATE\FAMOTIDINE\MAGNESIUM HYDROXIDE
  5. ADVAIR HFA [Concomitant]
     Active Substance: FLUTICASONE PROPIONATE\SALMETEROL XINAFOATE
  6. ACET CODEINE [Concomitant]
  7. BENTYL [Concomitant]
     Active Substance: DICYCLOMINE HYDROCHLORIDE
  8. BENZONATATE [Concomitant]
     Active Substance: BENZONATATE
  9. CALCIUM [Concomitant]
     Active Substance: CALCIUM
  10. CARAFATE [Concomitant]
     Active Substance: SUCRALFATE
  11. OXYMETAZOLINE HYDROCHLORIDE [Concomitant]
     Active Substance: OXYMETAZOLINE HYDROCHLORIDE
  12. CRESEMBA [Concomitant]
     Active Substance: ISAVUCONAZONIUM SULFATE
  13. CYCLOBENZAPRINE [Concomitant]
     Active Substance: CYCLOBENZAPRINE
  14. ELIQUIS [Concomitant]
     Active Substance: APIXABAN
  15. FAMOTIDINE [Concomitant]
     Active Substance: FAMOTIDINE
  16. FLONASE ALLERGY RELIEF [Concomitant]
     Active Substance: FLUTICASONE PROPIONATE
  17. GUAIFENESIN [Concomitant]
     Active Substance: GUAIFENESIN
  18. LEVAQUIN [Concomitant]
     Active Substance: LEVOFLOXACIN
  19. LORATADINE [Concomitant]
     Active Substance: LORATADINE
  20. LEVALBUTEROL HYDROCHLORIDE [Concomitant]
     Active Substance: LEVALBUTEROL HYDROCHLORIDE
  21. MELATONIN [Concomitant]
     Active Substance: MELATONIN
  22. METAXALONE [Concomitant]
     Active Substance: METAXALONE
  23. MINOCYCLINE [Concomitant]
     Active Substance: MINOCYCLINE HYDROCHLORIDE
  24. MUCINEX [Concomitant]
     Active Substance: GUAIFENESIN
  25. OXYCODONE [Concomitant]
     Active Substance: OXYCODONE
  26. PANCREAZE [AMYLASE;LIPASE;PROTEASE NOS] [Concomitant]
  27. PANTOPRAZOLE [Concomitant]
     Active Substance: PANTOPRAZOLE
  28. PERCOCET [Concomitant]
     Active Substance: ACETAMINOPHEN\OXYCODONE HYDROCHLORIDE
  29. PREDNISONE [Concomitant]
     Active Substance: PREDNISONE
  30. PROCHLORPERAZINE [Concomitant]
     Active Substance: PROCHLORPERAZINE
  31. PROMETHAZINE [Concomitant]
     Active Substance: PROMETHAZINE HYDROCHLORIDE
  32. PULMOZYME [Concomitant]
     Active Substance: DORNASE ALFA
  33. TOBRAMYCIN [Concomitant]
     Active Substance: TOBRAMYCIN
  34. CREON [Concomitant]
     Active Substance: PANCRELIPASE AMYLASE\PANCRELIPASE LIPASE\PANCRELIPASE PROTEASE
  35. TRIKAFTA [Concomitant]
     Active Substance: ELEXACAFTOR\IVACAFTOR\TEZACAFTOR
  36. SEROQUEL [Concomitant]
     Active Substance: QUETIAPINE FUMARATE
  37. SERTRALINE [Concomitant]
     Active Substance: SERTRALINE HYDROCHLORIDE
  38. SODIUM CHLORIDE [Concomitant]
     Active Substance: SODIUM CHLORIDE
  39. TOPAMAX [Concomitant]
     Active Substance: TOPIRAMATE
  40. TRAMADOL [Concomitant]
     Active Substance: TRAMADOL
  41. URSODIOL [Concomitant]
     Active Substance: URSODIOL
  42. XIFAXAN [Concomitant]
     Active Substance: RIFAXIMIN
  43. ZOLOFT [Concomitant]
     Active Substance: SERTRALINE HYDROCHLORIDE
  44. SODIUM CHLORIDE [Concomitant]
     Active Substance: SODIUM CHLORIDE
  45. APAP/CODEINE PHOSPHATE [Concomitant]
  46. TRAZODONE [Concomitant]
     Active Substance: TRAZODONE HYDROCHLORIDE
  47. ACID REDUCER [CIMETIDINE] [Concomitant]
  48. APAP/CODEINE PHOSPHATE [Concomitant]
  49. OXYMETAZOLINE HYDROCHLORIDE [Concomitant]
     Active Substance: OXYMETAZOLINE HYDROCHLORIDE
  50. CYCLOBENZAPRINE [Concomitant]
     Active Substance: CYCLOBENZAPRINE
  51. FLONASE [Concomitant]
     Active Substance: FLUTICASONE PROPIONATE
  52. FLUTICA [FLUTICASONE FUROATE] [Concomitant]
  53. LEVALBUTEROL HYDROCHLORIDE [Concomitant]
     Active Substance: LEVALBUTEROL HYDROCHLORIDE
  54. OXYCOD [OXYCODONE HYDROCHLORIDE] [Concomitant]
  55. PANCREAZE [Concomitant]
     Active Substance: PANCRELIPASE AMYLASE\PANCRELIPASE LIPASE\PANCRELIPASE PROTEASE
  56. ACETAMINOPHEN\OXYCODONE HYDROCHLORIDE\OXYCODONE TEREPHTHALATE [Concomitant]
     Active Substance: ACETAMINOPHEN\OXYCODONE HYDROCHLORIDE\OXYCODONE TEREPHTHALATE
  57. PROCHLORPERAZINE MALEATE [Concomitant]
     Active Substance: PROCHLORPERAZINE MALEATE
  58. SALINE [BORIC ACID] [Concomitant]

REACTIONS (19)
  - Lung disorder [Recovered/Resolved]
  - Cystic fibrosis respiratory infection suppression [Recovered/Resolved]
  - Pneumonia [Unknown]
  - Fatigue [Not Recovered/Not Resolved]
  - Loss of personal independence in daily activities [Not Recovered/Not Resolved]
  - Dyspnoea [Not Recovered/Not Resolved]
  - Muscle spasms [Not Recovered/Not Resolved]
  - Dyspepsia [Not Recovered/Not Resolved]
  - Pain [Not Recovered/Not Resolved]
  - Diarrhoea [Not Recovered/Not Resolved]
  - Urticaria [Not Recovered/Not Resolved]
  - Sleep disorder [Recovered/Resolved]
  - Exercise tolerance decreased [Recovered/Resolved]
  - Nasal inflammation [Recovered/Resolved]
  - Cough [Recovered/Resolved]
  - Wheezing [Recovered/Resolved]
  - Social problem [Recovered/Resolved]
  - Nasal congestion [Recovered/Resolved]
  - Productive cough [Recovered/Resolved]

NARRATIVE: CASE EVENT DATE: 20250420
